FAERS Safety Report 6643862-X (Version None)
Quarter: 2010Q1

REPORT INFORMATION
  Report Type: 
  Country: None (occurrence: None)
  Receive Date: 20100317
  Receipt Date: 20100315
  Transmission Date: 20100710
  Serious: Yes (Disabling)
  Sender: FDA-Public Use
  Company Number: LEO-2010-00095

PATIENT
  Age: 27 Year
  Sex: Female

DRUGS (7)
  1. INNOHEP [Suspect]
     Indication: PROPHYLAXIS
     Dosage: 4500 IU (4500 IU, 1 IN 1 D); 3200 IU (1600 IU, 2 IN 1 D)
  2. METHADONE HCL [Concomitant]
  3. MEPERIDINE HCL [Concomitant]
  4. MAXOOLON (METOCLOPRAMIDE HYDROCHLORIDE) [Concomitant]
  5. TEMAZEPAM [Concomitant]
  6. SYNTOCINON [Concomitant]
  7. SYNTOMETRINE (OXYTOCIN, ERGOMETRINE) [Concomitant]

REACTIONS (3)
  - DEEP VEIN THROMBOSIS [None]
  - DRUG EXPOSURE DURING PREGNANCY [None]
  - DRUG INEFFECTIVE [None]
